FAERS Safety Report 8733851 (Version 2)
Quarter: 2012Q4

REPORT INFORMATION
  Report Type: Report from Study
  Country: US (occurrence: US)
  Receive Date: 20120821
  Receipt Date: 20121101
  Transmission Date: 20130627
  Serious: Yes (Other)
  Sender: FDA-Public Use
  Company Number: US-ASTELLAS-2012US001819

PATIENT
  Age: 10 Year
  Sex: Female
  Weight: 57 kg

DRUGS (1)
  1. TACROLIMUS OINTMENT [Suspect]
     Indication: DERMATITIS ATOPIC
     Dosage: 0.03 %, Weekly
     Route: 061
     Dates: start: 20091210

REACTIONS (2)
  - Impetigo [Recovered/Resolved]
  - Body tinea [Recovered/Resolved]
